FAERS Safety Report 9716620 (Version 1)
Quarter: 2013Q4

REPORT INFORMATION
  Report Type: Spontaneous
  Country: US (occurrence: None)
  Receive Date: 20131126
  Receipt Date: 20131126
  Transmission Date: 20140711
  Serious: No
  Sender: FDA-Public Use
  Company Number: None

PATIENT
  Sex: Male

DRUGS (1)
  1. DEGARELIX 120 MG [Suspect]
     Dosage: 240 MG/2 INJECTIONS, SUBCUTANEOUS
     Route: 058

REACTIONS (2)
  - Injury associated with device [None]
  - Syringe issue [None]
